FAERS Safety Report 7320541-7 (Version None)
Quarter: 2011Q1

REPORT INFORMATION
  Report Type: 
  Country: None (occurrence: None)
  Receive Date: 20110228
  Receipt Date: 20110223
  Transmission Date: 20110831
  Serious: Yes (Other)
  Sender: FDA-Public Use
  Company Number: FR-PFIZER INC-2011039370

PATIENT
  Age: 42 Year
  Sex: Male

DRUGS (2)
  1. MEDROL [Suspect]
     Dosage: 3 DF, 1X/DAY
  2. OXYBUTYNIN [Suspect]
     Dosage: 3 DF, SINGLE
     Dates: start: 20110102, end: 20110102

REACTIONS (4)
  - WRONG DRUG ADMINISTERED [None]
  - MEDICATION ERROR [None]
  - BLADDER OBSTRUCTION [None]
  - ACCOMMODATION DISORDER [None]
